FAERS Safety Report 9450944 (Version 1)
Quarter: 2013Q3

REPORT INFORMATION
  Report Type: Spontaneous
  Country: GB (occurrence: None)
  Receive Date: 20130807
  Receipt Date: 20130807
  Transmission Date: 20140515
  Serious: Yes (Hospitalization)
  Sender: FDA-Public Use
  Company Number: AUR-APL-2013-06272

PATIENT
  Age: 20 Year
  Sex: Male

DRUGS (1)
  1. CITALOPRAM (CITALOPRAM) [Suspect]
     Indication: DEPRESSED MOOD
     Route: 048
     Dates: start: 20120323, end: 201211

REACTIONS (6)
  - Jaundice [None]
  - Splenomegaly [None]
  - Pruritus [None]
  - Lethargy [None]
  - Nausea [None]
  - Spleen palpable [None]
